FAERS Safety Report 14416785 (Version 2)
Quarter: 2018Q1

REPORT INFORMATION
  Report Type: Spontaneous
  Country: JP (occurrence: JP)
  Receive Date: 20180122
  Receipt Date: 20180202
  Transmission Date: 20180509
  Serious: Yes (Hospitalization)
  Sender: FDA-Public Use
  Company Number: JP-ASTELLAS-2017JP021740AA

PATIENT
  Age: 77 Year
  Sex: Male
  Weight: 53 kg

DRUGS (17)
  1. BAKTAR [Suspect]
     Active Substance: SULFAMETHOXAZOLE\TRIMETHOPRIM
     Indication: PRODUCT USED FOR UNKNOWN INDICATION
     Dosage: UNK UNK, UNKNOWN FREQ.
     Route: 048
  2. PROGRAF [Interacting]
     Active Substance: TACROLIMUS\TACROLIMUS ANHYDROUS
     Indication: POLYMYOSITIS
     Route: 048
     Dates: start: 20171110, end: 20171117
  3. PREDONINE [Suspect]
     Active Substance: PREDNISOLONE
     Indication: PRODUCT USED FOR UNKNOWN INDICATION
     Dosage: UNK UNK, UNKNOWN FREQ.
     Route: 048
  4. PROGRAF [Interacting]
     Active Substance: TACROLIMUS\TACROLIMUS ANHYDROUS
     Route: 048
     Dates: start: 20171213, end: 20171220
  5. PROGRAF [Interacting]
     Active Substance: TACROLIMUS\TACROLIMUS ANHYDROUS
     Route: 048
     Dates: start: 20171221
  6. INTRALIPOS [Suspect]
     Active Substance: SOYBEAN OIL
     Indication: DRUG THERAPY
     Route: 041
     Dates: start: 20171030, end: 20171116
  7. PROGRAF [Interacting]
     Active Substance: TACROLIMUS\TACROLIMUS ANHYDROUS
     Route: 048
     Dates: start: 20171118, end: 20171212
  8. MAXIPIME [Suspect]
     Active Substance: CEFEPIME HYDROCHLORIDE
     Indication: DRUG THERAPY
     Route: 041
     Dates: start: 20171031, end: 20171114
  9. PREDONINE                          /00016203/ [Suspect]
     Active Substance: PREDNISOLONE SODIUM SUCCINATE
     Indication: STEROID THERAPY
     Route: 041
     Dates: start: 20171020
  10. BIOFERMIN R [Suspect]
     Active Substance: BACILLUS SUBTILIS\LACTOBACILLUS ACIDOPHILUS\STREPTOCOCCUS FAECAIS
     Indication: PRODUCT USED FOR UNKNOWN INDICATION
     Dosage: UNK UNK, UNKNOWN FREQ.
     Route: 048
  11. FENTANYL                           /00174602/ [Suspect]
     Active Substance: FENTANYL
     Indication: PRODUCT USED FOR UNKNOWN INDICATION
     Dosage: UNK UNK, UNKNOWN FREQ.
     Route: 065
  12. LASIX [Suspect]
     Active Substance: FUROSEMIDE
     Indication: DRUG THERAPY
     Route: 041
     Dates: start: 20171020, end: 20171113
  13. HUMULIN R [Suspect]
     Active Substance: INSULIN HUMAN
     Indication: DIABETES MELLITUS MANAGEMENT
     Dosage: UNK, AS NEEDED
     Route: 065
  14. MIDAZOLAM [Suspect]
     Active Substance: MIDAZOLAM HYDROCHLORIDE
     Indication: PRODUCT USED FOR UNKNOWN INDICATION
     Dosage: UNK UNK, UNKNOWN FREQ.
     Route: 065
  15. PROGRAF [Suspect]
     Active Substance: TACROLIMUS\TACROLIMUS ANHYDROUS
     Indication: INTERSTITIAL LUNG DISEASE
     Route: 048
     Dates: start: 20171102, end: 20171109
  16. ENDOXAN                            /00021101/ [Interacting]
     Active Substance: CYCLOPHOSPHAMIDE
     Indication: DRUG THERAPY
     Route: 041
     Dates: start: 20171027, end: 20171027
  17. OMEPRAL                            /00661202/ [Suspect]
     Active Substance: OMEPRAZOLE SODIUM
     Indication: DRUG THERAPY
     Route: 041
     Dates: start: 20171020, end: 20171113

REACTIONS (3)
  - Drug interaction [Recovered/Resolved]
  - Thrombocytopenia [Recovered/Resolved]
  - Tremor [Recovered/Resolved]

NARRATIVE: CASE EVENT DATE: 20171110
